FAERS Safety Report 7889137-2 (Version None)
Quarter: 2011Q4

REPORT INFORMATION
  Report Type: 
  Country: None (occurrence: None)
  Receive Date: 20111101
  Receipt Date: 20111018
  Transmission Date: 20120403
  Serious: Yes (Hospitalization)
  Sender: FDA-Public Use
  Company Number: DSA_48023_2011

PATIENT
  Sex: Male

DRUGS (3)
  1. BUPROPION HYDROCHLORIDE [Suspect]
     Indication: DEPRESSION
     Dosage: 150 MG, DAILY ORAL
     Route: 048
     Dates: start: 20110905, end: 20110909
  2. LYRICA [Concomitant]
  3. CIPRO [Concomitant]

REACTIONS (5)
  - URINARY TRACT INFECTION [None]
  - ELECTROCARDIOGRAM ST SEGMENT ELEVATION [None]
  - BUNDLE BRANCH BLOCK LEFT [None]
  - NO THERAPEUTIC RESPONSE [None]
  - HYPERTENSION [None]
